FAERS Safety Report 4350182-5 (Version None)
Quarter: 2004Q2

REPORT INFORMATION
  Report Type: 
  Country: None (occurrence: None)
  Receive Date: 20040426
  Receipt Date: 20040415
  Transmission Date: 20050107
  Serious: Yes (Hospitalization)
  Sender: FDA-Public Use
  Company Number: US-JNJFOC-20040202408

PATIENT
  Age: 45 Year
  Sex: Male

DRUGS (1)
  1. LEVAQUIN [Suspect]
     Indication: BRONCHITIS

REACTIONS (6)
  - BEHCET'S SYNDROME [None]
  - DEPRESSION [None]
  - HYPERSENSITIVITY [None]
  - PAIN [None]
  - STEVENS-JOHNSON SYNDROME [None]
  - WEIGHT INCREASED [None]
